FAERS Safety Report 26077555 (Version 1)
Quarter: 2025Q4

REPORT INFORMATION
  Report Type: Spontaneous
  Country: US (occurrence: US)
  Receive Date: 20251121
  Receipt Date: 20251121
  Transmission Date: 20260118
  Serious: No
  Sender: NOVO NORDISK
  Company Number: US-NOVOPROD-1509194

PATIENT
  Age: 57 Year
  Sex: Female

DRUGS (11)
  1. TRESIBA [Suspect]
     Active Substance: INSULIN DEGLUDEC
     Dosage: 80 UNITS AT BEDTIME
     Dates: start: 20250730
  2. TRESIBA [Suspect]
     Active Substance: INSULIN DEGLUDEC
     Indication: Type 2 diabetes mellitus
     Dosage: 70 UNITS
     Dates: start: 20250318
  3. ALBUTEROL SULFATE [Concomitant]
     Active Substance: ALBUTEROL SULFATE
     Indication: Product used for unknown indication
     Dosage: INHALE 1 PUFF BY MOUTH EVERY 6 HOURS
  4. CELECOXIB [Concomitant]
     Active Substance: CELECOXIB
     Indication: Product used for unknown indication
     Dosage: 200 MG, QD
     Route: 048
  5. DULOXETINE [Concomitant]
     Active Substance: DULOXETINE
     Indication: Product used for unknown indication
     Dosage: 30 MG, QD
     Route: 048
  6. LOSARTAN+HIDROCLOROTIAZIDA [Concomitant]
     Indication: Product used for unknown indication
     Dosage: 1 TAB BY MOUTH DAILY
     Route: 048
  7. OXYBUTYNIN CHLORIDE [Concomitant]
     Active Substance: OXYBUTYNIN CHLORIDE
     Indication: Product used for unknown indication
     Dosage: 15 MG, QD
     Route: 048
  8. PRAMIPEXOLE [Concomitant]
     Active Substance: PRAMIPEXOLE
     Indication: Product used for unknown indication
     Dosage: 0.25 MG, BID
     Route: 048
  9. TRAMADOL [Concomitant]
     Active Substance: TRAMADOL
     Indication: Product used for unknown indication
     Dosage: 50 MG, QID
     Route: 048
  10. FIASP [Concomitant]
     Active Substance: INSULIN ASPART
     Indication: Product used for unknown indication
     Dosage: 50 UNITS 4 TIMES DAILY
     Route: 058
  11. OZEMPIC [Concomitant]
     Active Substance: SEMAGLUTIDE
     Indication: Product used for unknown indication
     Dosage: 2 MG, QW
     Route: 058

REACTIONS (10)
  - Feeling abnormal [Recovered/Resolved]
  - Blood glucose increased [Unknown]
  - Fatigue [Unknown]
  - Lymphoedema [Unknown]
  - Restless legs syndrome [Unknown]
  - Restless legs syndrome [Unknown]
  - Blood glucose increased [Unknown]
  - Lymphoedema [Unknown]
  - Product dispensing error [Unknown]
  - Product dispensing issue [Unknown]

NARRATIVE: CASE EVENT DATE: 20250418
